FAERS Safety Report 24538536 (Version 2)
Quarter: 2024Q4

REPORT INFORMATION
  Report Type: Spontaneous
  Country: CA (occurrence: CA)
  Receive Date: 20241023
  Receipt Date: 20241226
  Transmission Date: 20250115
  Serious: Yes (Other)
  Sender: ROCHE
  Company Number: CA-ROCHE-10000113537

PATIENT
  Age: 76 Year
  Sex: Female

DRUGS (1)
  1. PIRFENIDONE [Suspect]
     Active Substance: PIRFENIDONE
     Indication: Idiopathic pulmonary fibrosis
     Route: 048

REACTIONS (6)
  - Gastrooesophageal reflux disease [Unknown]
  - Asthenia [Unknown]
  - Brain fog [Unknown]
  - Decreased appetite [Unknown]
  - Diarrhoea [Unknown]
  - Rash [Unknown]
